FAERS Safety Report 23463065 (Version 7)
Quarter: 2024Q2

REPORT INFORMATION
  Report Type: Spontaneous
  Country: JP (occurrence: JP)
  Receive Date: 20240131
  Receipt Date: 20240410
  Transmission Date: 20240716
  Serious: Yes (Hospitalization, Other)
  Sender: FDA-Public Use
  Company Number: JP-BIOVITRUM-2024-JP-001292

PATIENT

DRUGS (3)
  1. EMPAVELI [Suspect]
     Active Substance: PEGCETACOPLAN
     Indication: Paroxysmal nocturnal haemoglobinuria
     Dosage: TWICE PER WEEK
     Route: 058
     Dates: start: 20231204, end: 20231228
  2. EMPAVELI [Suspect]
     Active Substance: PEGCETACOPLAN
     Dosage: TWICE PER WEEK
     Route: 058
     Dates: start: 20240105, end: 20240216
  3. EMPAVELI [Suspect]
     Active Substance: PEGCETACOPLAN
     Dosage: TWICE PER WEEK
     Route: 058
     Dates: start: 20240301

REACTIONS (18)
  - Haemoglobin decreased [Not Recovered/Not Resolved]
  - Pyrexia [Recovered/Resolved]
  - Sepsis [Recovered/Resolved]
  - Renal impairment [Not Recovered/Not Resolved]
  - Influenza [Recovered/Resolved]
  - Malaise [Recovering/Resolving]
  - Menstrual disorder [Recovered/Resolved]
  - Platelet count decreased [Not Recovered/Not Resolved]
  - Chills [Recovered/Resolved]
  - Nausea [Recovered/Resolved]
  - Vomiting [Recovered/Resolved]
  - Decreased appetite [Recovered/Resolved]
  - Streptococcus test positive [Not Recovered/Not Resolved]
  - Anaemia [Unknown]
  - Injection site pain [Recovering/Resolving]
  - Dizziness [Not Recovered/Not Resolved]
  - Headache [Not Recovered/Not Resolved]
  - Product dose omission issue [Unknown]

NARRATIVE: CASE EVENT DATE: 20231228
